FAERS Safety Report 7558476-7 (Version None)
Quarter: 2011Q2

REPORT INFORMATION
  Report Type: 
  Country: None (occurrence: None)
  Receive Date: 20110620
  Receipt Date: 20110617
  Transmission Date: 20111010
  Serious: Yes (Hospitalization, Other)
  Sender: FDA-Public Use
  Company Number: US-MERCK-1105USA03041

PATIENT
  Age: 69 Year
  Sex: Male
  Weight: 106 kg

DRUGS (9)
  1. ATENOLOL [Concomitant]
     Route: 048
  2. NEXIUM [Concomitant]
     Route: 065
  3. GLUCOTROL [Concomitant]
     Route: 065
  4. LISINOPRIL [Concomitant]
     Route: 048
  5. ALLOPURINOL [Concomitant]
     Route: 065
  6. ASPIRIN [Concomitant]
     Route: 048
  7. ZOCOR [Concomitant]
     Route: 048
  8. VITAMIN D (UNSPECIFIED) [Concomitant]
     Route: 065
  9. JANUVIA [Suspect]
     Indication: TYPE 2 DIABETES MELLITUS
     Route: 048
     Dates: start: 20100810, end: 20110503

REACTIONS (2)
  - PANCREATITIS [None]
  - CHOLELITHIASIS [None]
